FAERS Safety Report 7054709-4 (Version None)
Quarter: 2010Q4

REPORT INFORMATION
  Report Type: 
  Country: None (occurrence: None)
  Receive Date: 20101015
  Receipt Date: 20101005
  Transmission Date: 20110411
  Serious: Yes (Hospitalization)
  Sender: FDA-Public Use
  Company Number: 017711

PATIENT
  Age: 34 Year
  Sex: Male

DRUGS (1)
  1. KEPPRA [Suspect]
     Indication: CONVULSION
     Dosage: (2000 MG, 500 MG, 2 TABLETS)
     Dates: start: 20100301

REACTIONS (10)
  - ABNORMAL BEHAVIOUR [None]
  - AORTIC RUPTURE [None]
  - CONVULSION [None]
  - FEMUR FRACTURE [None]
  - MULTIPLE INJURIES [None]
  - PRODUCT SUBSTITUTION ISSUE [None]
  - ROAD TRAFFIC ACCIDENT [None]
  - TRAUMATIC LUNG INJURY [None]
  - TREATMENT NONCOMPLIANCE [None]
  - VENOUS THROMBOSIS [None]
